FAERS Safety Report 15518529 (Version 1)
Quarter: 2018Q4

REPORT INFORMATION
  Report Type: Spontaneous
  Country: US (occurrence: US)
  Receive Date: 20181017
  Receipt Date: 20181017
  Transmission Date: 20190205
  Serious: Yes (Death, Hospitalization)
  Sender: FDA-Public Use
  Company Number: US-ACTELION-A-NJ2018-180165

PATIENT
  Age: 58 Year
  Sex: Female

DRUGS (3)
  1. ASPIRIN. [Concomitant]
     Active Substance: ASPIRIN
     Dosage: 325 MG, QD
     Dates: start: 2014
  2. TRACLEER [Suspect]
     Active Substance: BOSENTAN
     Indication: PULMONARY ARTERIAL HYPERTENSION
     Dosage: 125 MG, BID
     Route: 048
     Dates: start: 2016
  3. LASIX [Concomitant]
     Active Substance: FUROSEMIDE
     Dosage: 60 MG, BID
     Dates: start: 2016

REACTIONS (4)
  - Cardiac failure congestive [Fatal]
  - Pulmonary oedema [Fatal]
  - Respiratory failure [Fatal]
  - Dyspnoea [Fatal]
